FAERS Safety Report 7250747-7 (Version None)
Quarter: 2011Q1

REPORT INFORMATION
  Report Type: 
  Country: None (occurrence: None)
  Receive Date: 20110128
  Receipt Date: 20110118
  Transmission Date: 20110831
  Serious: Yes (Hospitalization)
  Sender: FDA-Public Use
  Company Number: CA-JNJFOC-20101000965

PATIENT
  Sex: Female
  Weight: 78.3 kg

DRUGS (16)
  1. PANTOLOC [Concomitant]
     Indication: DYSPEPSIA
  2. MTX [Concomitant]
     Indication: RHEUMATOID ARTHRITIS
  3. TYLENOL-500 [Concomitant]
     Indication: PAIN
     Route: 048
  4. REMICADE [Suspect]
     Indication: RHEUMATOID ARTHRITIS
     Route: 042
  5. TRIAMZIDE [Concomitant]
     Indication: BLOOD PRESSURE
  6. MEDROL [Concomitant]
     Indication: RHEUMATOID ARTHRITIS
  7. ALENDRONATE SODIUM [Concomitant]
     Indication: OSTEOPOROSIS PROPHYLAXIS
  8. CRESTOR [Concomitant]
     Indication: BLOOD CHOLESTEROL INCREASED
  9. CALTRATE 600 WITH VITAMIN D [Concomitant]
     Indication: MEDICAL DIET
  10. SYNTHROID [Concomitant]
     Indication: HYPOTHYROIDISM
  11. PLAVIX [Concomitant]
     Indication: PROPHYLAXIS
  12. CLONAZEPAM [Concomitant]
     Indication: SLEEP DISORDER
  13. REMICADE [Suspect]
     Route: 042
  14. FOLIC ACID [Concomitant]
     Indication: PROPHYLAXIS
  15. EFFEXOR [Concomitant]
     Indication: DEPRESSION
  16. SUPRADOL [Concomitant]
     Route: 048

REACTIONS (2)
  - PAIN IN EXTREMITY [None]
  - FEMORAL ARTERY OCCLUSION [None]
